FAERS Safety Report 24604559 (Version 1)
Quarter: 2024Q4

REPORT INFORMATION
  Report Type: Spontaneous
  Country: DE (occurrence: DE)
  Receive Date: 20241111
  Receipt Date: 20241111
  Transmission Date: 20250115
  Serious: Yes (Other)
  Sender: BAYER HEALTHCARE PHARMACEUTICALS INC.
  Company Number: DE-BAYER-2024A124391

PATIENT
  Age: 86 Year
  Sex: Male

DRUGS (2)
  1. KERENDIA [Suspect]
     Active Substance: FINERENONE
     Indication: Proteinuria
     Dosage: 10 MG
  2. KERENDIA [Suspect]
     Active Substance: FINERENONE
     Indication: Proteinuria
     Dosage: 20 MG
     Dates: start: 20240430, end: 20240821

REACTIONS (4)
  - Glomerular filtration rate decreased [Recovering/Resolving]
  - Blood creatinine increased [None]
  - Dyspnoea exertional [Recovering/Resolving]
  - Blood potassium decreased [None]

NARRATIVE: CASE EVENT DATE: 20240101
